FAERS Safety Report 15804029 (Version 1)
Quarter: 2019Q1

REPORT INFORMATION
  Report Type: Spontaneous
  Country: US (occurrence: US)
  Receive Date: 20190109
  Receipt Date: 20190109
  Transmission Date: 20190417
  Serious: Yes (Disabling)
  Sender: FDA-Public Use
  Company Number: None

PATIENT
  Age: 64 Year
  Sex: Male
  Weight: 85.5 kg

DRUGS (4)
  1. AMLODIPINE BESYLATE. [Concomitant]
     Active Substance: AMLODIPINE BESYLATE
  2. ATORVASTATIN [Concomitant]
     Active Substance: ATORVASTATIN
  3. PRASUGREL. [Concomitant]
     Active Substance: PRASUGREL
  4. LOSARTANPOTASSIUM [Suspect]
     Active Substance: LOSARTAN POTASSIUM
     Indication: BLOOD PRESSURE MEASUREMENT
     Dosage: ?          QUANTITY:1 TABLET(S);?
     Route: 048
     Dates: start: 20160101, end: 20190107

REACTIONS (13)
  - Dyspnoea [None]
  - Red blood cells urine positive [None]
  - Nausea [None]
  - Dizziness [None]
  - Abdominal pain [None]
  - Presyncope [None]
  - Pruritus [None]
  - Protein urine present [None]
  - Suspected product tampering [None]
  - Hepatic cyst [None]
  - Peripheral coldness [None]
  - Chills [None]
  - Blood bilirubin increased [None]

NARRATIVE: CASE EVENT DATE: 20181208
